FAERS Safety Report 5289109-0 (Version None)
Quarter: 2007Q1

REPORT INFORMATION
  Report Type: 
  Country: None (occurrence: None)
  Receive Date: 20070124
  Receipt Date: 20060524
  Transmission Date: 20070707
  Serious: Yes (Hospitalization)
  Sender: FDA-Public Use
  Company Number: US200512003505

PATIENT
  Age: 82 Year
  Sex: Female

DRUGS (4)
  1. FORTEO [Suspect]
     Indication: OSTEOPOROSIS
     Dates: start: 20040701
  2. FORTEO [Suspect]
     Indication: OSTEOPOROSIS
     Dates: start: 20051026
  3. FORTEO [Suspect]
     Indication: OSTEOPOROSIS
     Dates: start: 20051123
  4. FORTEO [Concomitant]

REACTIONS (6)
  - BLOOD PRESSURE INCREASED [None]
  - DYSSTASIA [None]
  - EAR INJURY [None]
  - FALL [None]
  - NAUSEA [None]
  - VERTIGO [None]
